FAERS Safety Report 17126543 (Version 1)
Quarter: 2019Q4

REPORT INFORMATION
  Report Type: Spontaneous
  Country: US (occurrence: US)
  Receive Date: 20191209
  Receipt Date: 20191209
  Transmission Date: 20200122
  Serious: Yes (Other)
  Sender: FDA-Public Use
  Company Number: US-UCBSA-2017015637

PATIENT
  Sex: Male

DRUGS (2)
  1. KEPPRA [Suspect]
     Active Substance: LEVETIRACETAM
     Indication: SEIZURE
     Dosage: 1500 MG, 2X/DAY (BID)
  2. KEPPRA [Interacting]
     Active Substance: LEVETIRACETAM
     Dosage: EXTRA PILL
     Dates: start: 201704, end: 201704

REACTIONS (6)
  - Generalised tonic-clonic seizure [Unknown]
  - Petit mal epilepsy [Unknown]
  - Product dose omission [Unknown]
  - Overdose [Unknown]
  - Gastroenteritis viral [Unknown]
  - Food interaction [Unknown]

NARRATIVE: CASE EVENT DATE: 201704
